FAERS Safety Report 9528486 (Version 1)
Quarter: 2013Q3

REPORT INFORMATION
  Report Type: Spontaneous
  Country: US (occurrence: US)
  Receive Date: 20130917
  Receipt Date: 20130917
  Transmission Date: 20140515
  Serious: Yes (Other)
  Sender: FDA-Public Use
  Company Number: US-JNJFOC-20130904473

PATIENT
  Sex: Female
  Weight: 80.29 kg

DRUGS (5)
  1. REMICADE [Suspect]
     Indication: RHEUMATOID ARTHRITIS
     Dosage: INITIATED ABOUT 5 YEARS PRIOR FROM THE TIME OF THE REPORT
     Route: 042
     Dates: start: 2008
  2. PREDNISONE [Suspect]
     Indication: PRODUCT USED FOR UNKNOWN INDICATION
     Route: 065
  3. METHOTREXATE [Concomitant]
     Indication: RHEUMATOID ARTHRITIS
     Route: 065
  4. COUMADIN [Concomitant]
     Indication: ATRIAL FIBRILLATION
     Route: 065
  5. VERAPAMIL [Concomitant]
     Indication: ATRIAL FIBRILLATION
     Route: 065

REACTIONS (3)
  - Diabetes mellitus [Not Recovered/Not Resolved]
  - Atrial fibrillation [Not Recovered/Not Resolved]
  - Eczema [Not Recovered/Not Resolved]
